FAERS Safety Report 21024026 (Version 2)
Quarter: 2022Q3

REPORT INFORMATION
  Report Type: Spontaneous
  Country: FR (occurrence: FR)
  Receive Date: 20220629
  Receipt Date: 20220718
  Transmission Date: 20221026
  Serious: Yes (Hospitalization, Other)
  Sender: FDA-Public Use
  Company Number: None

PATIENT
  Age: 90 Year
  Sex: Female
  Weight: 64 kg

DRUGS (8)
  1. VENLAFAXINE HCL [Interacting]
     Active Substance: VENLAFAXINE HYDROCHLORIDE
     Indication: Anxiety
     Dosage: 37.5 MG, 1X/DAY (LONG LASTING TREATMENT)
     Route: 048
  2. CALCIPARINE [Interacting]
     Active Substance: HEPARIN CALCIUM
     Indication: Deep vein thrombosis
     Dosage: 0.6 ML, 1X/DAY
     Route: 058
     Dates: start: 20211021, end: 20211116
  3. WARFARIN SODIUM [Suspect]
     Active Substance: WARFARIN SODIUM
     Dosage: UNK
  4. PRAVASTATIN [Concomitant]
     Active Substance: PRAVASTATIN
     Dosage: 10 MG 0-1-0
  5. LEVOTHYROXINE [Concomitant]
     Active Substance: LEVOTHYROXINE
     Dosage: 100 UG, 1-0-0
  6. ALLOPURINOL [Concomitant]
     Active Substance: ALLOPURINOL
     Dosage: 100 MG
  7. OXAZEPAM [Concomitant]
     Active Substance: OXAZEPAM
     Dosage: 10 MG, 0-0-1
  8. PINDOLOL [Concomitant]
     Active Substance: PINDOLOL
     Dosage: 15 MG, 0.5-0-0

REACTIONS (3)
  - Drug interaction [Not Recovered/Not Resolved]
  - Haematoma muscle [Not Recovered/Not Resolved]
  - Haemoglobin decreased [Unknown]

NARRATIVE: CASE EVENT DATE: 20211025
